FAERS Safety Report 10557834 (Version 1)
Quarter: 2014Q4

REPORT INFORMATION
  Report Type: Spontaneous
  Country: US (occurrence: US)
  Receive Date: 20141031
  Receipt Date: 20141031
  Transmission Date: 20150529
  Serious: No
  Sender: FDA-Public Use
  Company Number: US-TARO-2014P1000522

PATIENT
  Sex: Female

DRUGS (2)
  1. LEVOTHYROXINE [Suspect]
     Active Substance: LEVOTHYROXINE
  2. ALCLOMETASONE DIPROPIONATE CREAM 0.05% [Suspect]
     Active Substance: ALCLOMETASONE DIPROPIONATE
     Dates: start: 20131029

REACTIONS (2)
  - Thyroid function test abnormal [Not Recovered/Not Resolved]
  - Drug interaction [Recovered/Resolved]
